FAERS Safety Report 8310569-2 (Version None)
Quarter: 2012Q2

REPORT INFORMATION
  Report Type: 
  Country: None (occurrence: None)
  Receive Date: 20120425
  Receipt Date: 20120417
  Transmission Date: 20120825
  Serious: Yes (Other)
  Sender: FDA-Public Use
  Company Number: US-JNJFOC-20120409736

PATIENT

DRUGS (1)
  1. ITRACONAZOLE [Suspect]
     Indication: BREAST CANCER METASTATIC
     Dosage: CYCLE CONSISTED OF 28 DAYS
     Route: 048

REACTIONS (7)
  - FATIGUE [None]
  - VOMITING [None]
  - DYSPNOEA [None]
  - PAIN [None]
  - INSOMNIA [None]
  - TOXICITY TO VARIOUS AGENTS [None]
  - HAEMORRHAGE [None]
